FAERS Safety Report 8228602-5 (Version None)
Quarter: 2012Q1

REPORT INFORMATION
  Report Type: 
  Country: None (occurrence: None)
  Receive Date: 20120322
  Receipt Date: 20111214
  Transmission Date: 20120608
  Serious: Yes (Other)
  Sender: FDA-Public Use
  Company Number: US-BRISTOL-MYERS SQUIBB COMPANY-15612500

PATIENT
  Age: 54 Year
  Sex: Male

DRUGS (2)
  1. RISPERIDONE [Concomitant]
  2. ERBITUX [Suspect]
     Indication: HEAD AND NECK CANCER
     Dates: start: 20110125

REACTIONS (5)
  - MENINGITIS ASEPTIC [None]
  - URTICARIA [None]
  - HEADACHE [None]
  - ERYTHEMA [None]
  - DYSPNOEA [None]
